FAERS Safety Report 17068950 (Version 1)
Quarter: 2019Q4

REPORT INFORMATION
  Report Type: Spontaneous
  Country: US (occurrence: US)
  Receive Date: 20191124
  Receipt Date: 20191124
  Transmission Date: 20200122
  Serious: Yes (Hospitalization)
  Sender: FDA-Public Use
  Company Number: US-TEVA-2019-US-1140372

PATIENT
  Sex: Male

DRUGS (2)
  1. RANOLAZINE EXTENDED-RELEAS TABLET [Suspect]
     Active Substance: RANOLAZINE
     Indication: ANGINA PECTORIS
     Route: 065
  2. RANOLAZINE EXTENDED-RELEAS TABLET [Suspect]
     Active Substance: RANOLAZINE
     Dosage: 2000 MILLIGRAM DAILY;
     Route: 065

REACTIONS (2)
  - Drug ineffective [Unknown]
  - Dizziness [Unknown]

NARRATIVE: CASE EVENT DATE: 20191108
